FAERS Safety Report 10359051 (Version 3)
Quarter: 2014Q3

REPORT INFORMATION
  Report Type: Spontaneous
  Country: FR (occurrence: FR)
  Receive Date: 20140804
  Receipt Date: 20140818
  Transmission Date: 20150326
  Serious: Yes (Hospitalization)
  Sender: FDA-Public Use
  Company Number: FR-BRISTOL-MYERS SQUIBB COMPANY-21259668

PATIENT
  Age: 58 Year
  Sex: Female

DRUGS (8)
  1. CRESTOR [Concomitant]
     Active Substance: ROSUVASTATIN CALCIUM
     Dosage: TABS
     Route: 048
  2. KARDEGIC [Concomitant]
     Active Substance: ASPIRIN LYSINE
     Dosage: TABS?75 MG
     Route: 048
  3. LANSOPRAZOLE. [Concomitant]
     Active Substance: LANSOPRAZOLE
     Dosage: TABS
     Route: 048
  4. STAGID [Concomitant]
     Active Substance: METFORMIN PAMOATE
     Indication: DIABETES MELLITUS
  5. AMAREL [Concomitant]
     Active Substance: GLIMEPIRIDE
     Indication: DIABETES MELLITUS
  6. PROCORALAN [Concomitant]
     Active Substance: IVABRADINE
     Dosage: 1 DF= 7.5 NO UNITS?TABS?7.5:1
     Route: 048
  7. JANUVIA [Concomitant]
     Active Substance: SITAGLIPTIN PHOSPHATE
     Indication: DIABETES MELLITUS
     Dosage: TABS
     Route: 048
  8. GLUCOPHAGE [Suspect]
     Active Substance: METFORMIN HYDROCHLORIDE
     Indication: DIABETES MELLITUS
     Dosage: 500MG?2006(1DF-3/DAY);2012;2013?FROM 28-APR-2014(2DF/DAY) FOR 3WEEKS
     Dates: start: 2006, end: 20140516

REACTIONS (9)
  - Glycosylated haemoglobin decreased [Unknown]
  - Hypertension [Recovered/Resolved]
  - Oesophagitis [Recovering/Resolving]
  - Pallor [Recovered/Resolved]
  - Abdominal pain [Unknown]
  - Constipation [Recovering/Resolving]
  - Nausea [Unknown]
  - Hyperglycaemia [Recovering/Resolving]
  - Vomiting [Recovered/Resolved]

NARRATIVE: CASE EVENT DATE: 20140429
